FAERS Safety Report 5333731-X (Version None)
Quarter: 2007Q2

REPORT INFORMATION
  Report Type: 
  Country: None (occurrence: None)
  Receive Date: 20070524
  Receipt Date: 20070521
  Transmission Date: 20071010
  Serious: Yes (Disabling)
  Sender: FDA-Public Use
  Company Number: NL-ASTRAZENECA-2007AC00909

PATIENT
  Age: 646 Month
  Sex: Male
  Weight: 80 kg

DRUGS (7)
  1. SYMBICORT [Suspect]
     Dosage: 400/12 UG, 1 INHALATION BID
     Route: 055
     Dates: start: 20051017
  2. CELESTONE [Suspect]
     Route: 048
     Dates: start: 20060226
  3. FLIXONASE NEUSSPRAY [Suspect]
     Route: 045
     Dates: start: 20051117
  4. NASONEX NEUSSPRAY [Suspect]
     Route: 045
     Dates: start: 20060619
  5. PREDNISOLONUM [Suspect]
     Route: 048
     Dates: start: 20051222
  6. CETIRIZINE HCL [Concomitant]
     Route: 048
     Dates: start: 20051123
  7. SINGULAIR [Concomitant]
     Route: 048
     Dates: start: 20060531

REACTIONS (1)
  - DEAFNESS [None]
